FAERS Safety Report 7790812-9 (Version None)
Quarter: 2011Q3

REPORT INFORMATION
  Report Type: 
  Country: None (occurrence: None)
  Receive Date: 20110930
  Receipt Date: 20110921
  Transmission Date: 20111222
  Serious: Yes (Hospitalization)
  Sender: FDA-Public Use
  Company Number: JP-MERCK-1108USA00493

PATIENT
  Age: 66 Year
  Sex: Male
  Weight: 98 kg

DRUGS (5)
  1. PEPCID [Suspect]
     Route: 041
     Dates: start: 20110624, end: 20110704
  2. CEFMETAZOLE SODIUM [Suspect]
     Route: 041
     Dates: start: 20110624, end: 20110629
  3. MIRACLID [Suspect]
     Dosage: 50 KIU
     Route: 041
     Dates: start: 20110624, end: 20110629
  4. FOY [Suspect]
     Route: 041
     Dates: start: 20110624, end: 20110629
  5. MEROPENEM [Suspect]
     Route: 041
     Dates: start: 20110629, end: 20110704

REACTIONS (2)
  - EOSINOPHILIA [None]
  - VASCULITIS [None]
